FAERS Safety Report 5279301-3 (Version None)
Quarter: 2007Q1

REPORT INFORMATION
  Report Type: 
  Country: None (occurrence: None)
  Receive Date: 20070328
  Receipt Date: 20060519
  Transmission Date: 20070707
  Serious: No
  Sender: FDA-Public Use
  Company Number: US-AMGEN-KDL180233

PATIENT
  Sex: Female

DRUGS (11)
  1. NEUPOGEN [Suspect]
     Indication: CHEMOTHERAPY
     Dates: start: 20060301, end: 20060301
  2. NEULASTA [Suspect]
     Dates: start: 20060404
  3. IBUPROFEN [Concomitant]
  4. PERCOCET [Concomitant]
     Dates: end: 20060101
  5. OXYCONTIN [Concomitant]
     Dates: end: 20060101
  6. NEXIUM [Concomitant]
  7. ZETIA [Concomitant]
  8. LESCOL [Concomitant]
  9. UNSPECIFIED MEDICATION [Concomitant]
  10. CARBOPLATIN [Concomitant]
     Dates: start: 20060301
  11. GEMCITABINE [Concomitant]
     Dates: start: 20060301

REACTIONS (3)
  - ARTHRALGIA [None]
  - BONE PAIN [None]
  - SCIATICA [None]
